FAERS Safety Report 8858685 (Version 6)
Quarter: 2013Q1

REPORT INFORMATION
  Report Type: Spontaneous
  Country: JP (occurrence: JP)
  Receive Date: 20121024
  Receipt Date: 20130102
  Transmission Date: 20140127
  Serious: Yes (Other)
  Sender: FDA-Public Use
  Company Number: JP-SANOFI-AVENTIS-2012SA071038

PATIENT
  Age: 64 Year
  Sex: Female
  Weight: 41.8 kg

DRUGS (5)
  1. LANTUS SOLOSTAR [Suspect]
     Indication: DIABETES MELLITUS
     Dosage: 4 IU IN EVENING DOSE:4 UNIT(S)
     Route: 058
     Dates: start: 20120423, end: 20120919
  2. SOLOSTAR [Suspect]
     Indication: DEVICE THERAPY
     Dates: start: 20120423, end: 20120919
  3. APIDRA SOLOSTAR [Suspect]
     Indication: DIABETES MELLITUS
     Dosage: DOSE+ DAILY DOSE - 6 UNITS IN THE MORNING, 3 UNITS AT NOON, 3 UNITS IN THE EVENING
     Route: 058
     Dates: start: 20120423, end: 20120919
  4. SOLOSTAR [Suspect]
     Indication: DEVICE THERAPY
     Dates: start: 20120423, end: 20120919
  5. CRAVIT [Concomitant]
     Indication: LOCALISED INFECTION
     Route: 048
     Dates: start: 20120508, end: 20120621

REACTIONS (2)
  - Liver disorder [Recovering/Resolving]
  - Anti-insulin antibody positive [Unknown]
